FAERS Safety Report 25254580 (Version 1)
Quarter: 2025Q2

REPORT INFORMATION
  Report Type: Spontaneous
  Country: CN (occurrence: CN)
  Receive Date: 20250430
  Receipt Date: 20250430
  Transmission Date: 20250716
  Serious: Yes (Hospitalization, Other)
  Sender: BAXTER
  Company Number: None

PATIENT
  Age: 77 Year
  Sex: Male
  Weight: 63 kg

DRUGS (9)
  1. CYCLOPHOSPHAMIDE [Suspect]
     Active Substance: CYCLOPHOSPHAMIDE
     Indication: B-cell lymphoma
     Dosage: 1.000000 G, QD, D5 (REGIMEN FOR 1 CYCLE), WITH SODIUM CHLORIDE INJECTION 100ML
     Route: 041
     Dates: start: 20250307, end: 20250307
  2. SODIUM CHLORIDE [Suspect]
     Active Substance: SODIUM CHLORIDE
     Dosage: 660 ML (0.9%), QD, D0, (REGIMEN FOR 1 CYCLE), WITH RITUXIMAB INJECTION
     Route: 041
     Dates: start: 20250302, end: 20250302
  3. ETOPOSIDE [Suspect]
     Active Substance: ETOPOSIDE
     Indication: B-cell lymphoma
     Dosage: 0.070000 G (70MG), QD, D1-4, (REGIMEN FOR 1 CYCLE), WITH SODIUM CHLORIDE INJECTION 500ML
     Route: 041
     Dates: start: 20250303, end: 20250306
  4. RITUXIMAB [Suspect]
     Active Substance: RITUXIMAB
     Indication: Targeted cancer therapy
     Dosage: 660.0000 MG, QD, D0 (REGIMEN FOR 1 CYCLE), WITH 0.9% SODIUM CHLORIDE INJECTION 660ML
     Route: 041
     Dates: start: 20250302, end: 20250302
  5. DOXORUBICIN HYDROCHLORIDE [Suspect]
     Active Substance: DOXORUBICIN HYDROCHLORIDE
     Indication: B-cell lymphoma
     Dosage: 20.00000 MG, QD (ONCE DAILY), D1-2 (REGIMEN FOR 1 CYCLE), WITH GLUCOSE INJECTION 250ML
     Route: 041
     Dates: start: 20250303, end: 20250304
  6. VINCRISTINE SULFATE [Suspect]
     Active Substance: VINCRISTINE SULFATE
     Indication: B-cell lymphoma
     Dosage: 0.500000 MG, QD, D1-4 (REGIMEN FOR 1 CYCLE), WITH SODIUM CHLORIDE INJECTION 500ML
     Route: 041
     Dates: start: 20250303, end: 20250306
  7. SODIUM CHLORIDE [Suspect]
     Active Substance: SODIUM CHLORIDE
     Indication: Medication dilution
     Dosage: 500.0000 ML, QD (ONCE DAILY), D1-4, (REGIMEN FOR 1 CYCLE), WITH ETOPOSIDE INJECTION AND VINCRISTINE
     Route: 041
     Dates: start: 20250303, end: 20250306
  8. SODIUM CHLORIDE [Suspect]
     Active Substance: SODIUM CHLORIDE
     Dosage: 100.0000 ML, QD (ONCE DAILY), (REGIMEN FOR 1 CYCLE), WITH CYCLOPHOSPHAMIDE FOR INJECTION ON D5, (APP
     Route: 041
     Dates: start: 20250302, end: 20250307
  9. DEXTROSE [Suspect]
     Active Substance: DEXTROSE MONOHYDRATE
     Indication: Medication dilution
     Dosage: 250 ML, QD (ONCE DAILY), D1-2, (REGIMEN FOR 1 CYCLE), WITH DOXORUBICIN HYDROCHLORIDE LIPOSOME INJECT
     Route: 041
     Dates: start: 20250303, end: 20250304

REACTIONS (5)
  - Myelosuppression [Recovering/Resolving]
  - Pancytopenia [Unknown]
  - White blood cell count decreased [Unknown]
  - Neutrophil count decreased [Unknown]
  - Platelet count decreased [Unknown]

NARRATIVE: CASE EVENT DATE: 20250311
